FAERS Safety Report 14455042 (Version 1)
Quarter: 2018Q1

REPORT INFORMATION
  Report Type: Spontaneous
  Country: FR (occurrence: FR)
  Receive Date: 20180129
  Receipt Date: 20180129
  Transmission Date: 20180509
  Serious: Yes (Hospitalization, Other)
  Sender: FDA-Public Use
  Company Number: FR-MYLANLABS-2018M1005057

PATIENT
  Sex: Female

DRUGS (4)
  1. DEXAMETHASONE. [Suspect]
     Active Substance: DEXAMETHASONE
     Indication: ACUTE LYMPHOCYTIC LEUKAEMIA
     Dosage: 8.6 MG, QD
     Route: 048
     Dates: start: 20171212, end: 20171226
  2. METHOTREXATE. [Suspect]
     Active Substance: METHOTREXATE
     Indication: ACUTE LYMPHOCYTIC LEUKAEMIA
     Dosage: 12 MG, QD
     Route: 037
     Dates: start: 20171215, end: 20171215
  3. DOXORUBICIN [Suspect]
     Active Substance: DOXORUBICIN
     Indication: ACUTE LYMPHOCYTIC LEUKAEMIA
     Dosage: 21.5 MG, QD
     Route: 042
     Dates: start: 20171212, end: 20171219
  4. PEGASPARGASE [Suspect]
     Active Substance: PEGASPARGASE
     Indication: ACUTE LYMPHOCYTIC LEUKAEMIA
     Dosage: 2150 IU, QD
     Route: 042
     Dates: start: 20171215, end: 20171215

REACTIONS (1)
  - Febrile bone marrow aplasia [Recovering/Resolving]

NARRATIVE: CASE EVENT DATE: 20171226
